FAERS Safety Report 20232973 (Version 1)
Quarter: 2021Q4

REPORT INFORMATION
  Report Type: Spontaneous
  Country: GB (occurrence: GB)
  Receive Date: 20211227
  Receipt Date: 20211227
  Transmission Date: 20220303
  Serious: Yes (Other)
  Sender: FDA-Public Use
  Company Number: GB-BAYER-2021A273846

PATIENT
  Sex: Male
  Weight: 11.3 kg

DRUGS (1)
  1. VITRAKVI [Suspect]
     Active Substance: LAROTRECTINIB

REACTIONS (3)
  - Escherichia infection [None]
  - Wound [None]
  - Food refusal [None]

NARRATIVE: CASE EVENT DATE: 20210101
